FAERS Safety Report 12227155 (Version 4)
Quarter: 2017Q1

REPORT INFORMATION
  Report Type: Spontaneous
  Country: US (occurrence: US)
  Receive Date: 20160331
  Receipt Date: 20170123
  Transmission Date: 20170428
  Serious: No
  Sender: FDA-Public Use
  Company Number: US-GLAXOSMITHKLINE-US2016GSK044087

PATIENT
  Sex: Female

DRUGS (4)
  1. WELLBUTRIN [Suspect]
     Active Substance: BUPROPION HYDROCHLORIDE
     Indication: PRODUCT USED FOR UNKNOWN INDICATION
  2. BUPROPION TABLET [Suspect]
     Active Substance: BUPROPION
     Indication: PRODUCT USED FOR UNKNOWN INDICATION
  3. BUPROPION SR PROLONGED-RELEASE TABLET [Suspect]
     Active Substance: BUPROPION
     Indication: OBSESSIVE THOUGHTS
     Dosage: 75 MG, BID
     Route: 048
     Dates: start: 2011
  4. BUPROPION SR PROLONGED-RELEASE TABLET [Suspect]
     Active Substance: BUPROPION
     Indication: HEADACHE

REACTIONS (8)
  - Drug dose omission [Unknown]
  - Acne [Recovered/Resolved]
  - Cyst [Unknown]
  - Rash [Unknown]
  - Feeling abnormal [Unknown]
  - Urticaria [Unknown]
  - Off label use [Unknown]
  - Acne cystic [Unknown]

NARRATIVE: CASE EVENT DATE: 2011
